FAERS Safety Report 5536268-8 (Version None)
Quarter: 2007Q4

REPORT INFORMATION
  Report Type: 
  Country: None (occurrence: None)
  Receive Date: 20071206
  Receipt Date: 20071203
  Transmission Date: 20080405
  Serious: No
  Sender: FDA-Public Use
  Company Number: US-BOEHRINGER INGELHEIM PHARMACEUTICALS, INC.-2007-BP-25478BP

PATIENT
  Sex: Female

DRUGS (1)
  1. MOBIC [Suspect]
     Route: 048
     Dates: start: 20071129, end: 20071201

REACTIONS (2)
  - ORAL PAIN [None]
  - STOMATITIS [None]
